FAERS Safety Report 20868007 (Version 2)
Quarter: 2022Q2

REPORT INFORMATION
  Report Type: Spontaneous
  Country: US (occurrence: US)
  Receive Date: 20220524
  Receipt Date: 20220525
  Transmission Date: 20220720
  Serious: No
  Sender: FDA-Public Use
  Company Number: US-PFIZER INC-202200743157

PATIENT
  Age: 65 Year
  Sex: Male
  Weight: 90.72 kg

DRUGS (1)
  1. VIAGRA [Suspect]
     Active Substance: SILDENAFIL CITRATE
     Indication: Erectile dysfunction
     Dosage: 100 MG, [100MG BY MOUTH TWICE A MONTH]
     Route: 048
     Dates: start: 2018

REACTIONS (2)
  - Drug ineffective [Unknown]
  - Intentional product misuse [Unknown]

NARRATIVE: CASE EVENT DATE: 20220516
